FAERS Safety Report 5303937-4 (Version None)
Quarter: 2007Q1

REPORT INFORMATION
  Report Type: 
  Country: None (occurrence: None)
  Receive Date: 20070201
  Receipt Date: 20061120
  Transmission Date: 20070707
  Serious: No
  Sender: FDA-Public Use
  Company Number: 2006PV025610

PATIENT
  Age: 61 Year
  Sex: Female
  Weight: 110.6777 kg

DRUGS (5)
  1. BYETTA [Suspect]
     Indication: DIABETES MELLITUS NON-INSULIN-DEPENDENT
     Dosage: SEE IMAGE
     Route: 058
     Dates: start: 20060901, end: 20061116
  2. BYETTA [Suspect]
     Indication: DIABETES MELLITUS NON-INSULIN-DEPENDENT
     Dosage: SEE IMAGE
     Route: 058
     Dates: start: 20061117
  3. NOVOLIN 70/30 [Concomitant]
  4. REGULAR INSULIN [Concomitant]
  5. FLUID PILL [Concomitant]

REACTIONS (3)
  - DECREASED APPETITE [None]
  - OEDEMA PERIPHERAL [None]
  - WEIGHT DECREASED [None]
